FAERS Safety Report 9798263 (Version 3)
Quarter: 2014Q1

REPORT INFORMATION
  Report Type: Spontaneous
  Country: US (occurrence: US)
  Receive Date: 20140106
  Receipt Date: 20140210
  Transmission Date: 20141002
  Serious: No
  Sender: FDA-Public Use
  Company Number: US-PFIZER INC-2014001800

PATIENT
  Age: 66 Year
  Sex: Female

DRUGS (15)
  1. EFFEXOR XR [Suspect]
     Indication: ANXIETY
     Dosage: 75 MG, ONCE A DAY
     Route: 048
     Dates: start: 20090324
  2. EFFEXOR XR [Suspect]
     Indication: AFFECTIVE DISORDER
     Dosage: 150 MG, DAILY
     Route: 048
     Dates: start: 2010
  3. PEPCID [Concomitant]
     Dosage: 10 MG, ONCE A DAY
  4. OMEGA III FATTY OIL [Concomitant]
     Dosage: UNK
  5. LASIX [Concomitant]
     Dosage: 20 MG, ONCE A DAY
  6. VALTREX [Concomitant]
     Dosage: UNK, AS NEEDED
  7. ASA [Concomitant]
     Dosage: UNK, ONCE A DAY
  8. LOSARTAN [Concomitant]
     Dosage: 100 MG, ONCE A DAY
  9. MIRALAX [Concomitant]
     Dosage: UNK, AS NEEDED
  10. ISOSORBIDE MONONITRATE [Concomitant]
     Dosage: 30 MG, ONCE A DAY
  11. PROTONIX [Concomitant]
     Dosage: 40 MG, TWICE A DAY
  12. BUPROPION XL [Concomitant]
     Dosage: 300 MG, ONCE A DAY,
  13. BYSTOLIC [Concomitant]
     Dosage: 0.5 MG, ONCE A DAY
  14. AMLODIPINE [Concomitant]
     Dosage: 5 MG, ONCE A DAY
  15. CLONAZEPAM [Concomitant]
     Dosage: 0.5 MG, ONCE A DAY

REACTIONS (1)
  - Hair texture abnormal [Unknown]
